FAERS Safety Report 7311527-7 (Version None)
Quarter: 2011Q1

REPORT INFORMATION
  Report Type: 
  Country: None (occurrence: None)
  Receive Date: 20110224
  Receipt Date: 20101201
  Transmission Date: 20110831
  Serious: No
  Sender: FDA-Public Use
  Company Number: A0893025A

PATIENT
  Age: 73 Year
  Sex: Female
  Weight: 47.4 kg

DRUGS (1)
  1. ARZERRA [Suspect]
     Dosage: 2000MG SEE DOSAGE TEXT
     Route: 042
     Dates: start: 20100910

REACTIONS (4)
  - PARAESTHESIA ORAL [None]
  - HAIR COLOUR CHANGES [None]
  - PARAESTHESIA [None]
  - NEUROPATHY PERIPHERAL [None]
